FAERS Safety Report 4579775-7 (Version None)
Quarter: 2005Q1

REPORT INFORMATION
  Report Type: 
  Country: None (occurrence: None)
  Receive Date: 20050210
  Receipt Date: 20050125
  Transmission Date: 20050727
  Serious: Yes (Hospitalization)
  Sender: FDA-Public Use
  Company Number: DSA_25535_2004

PATIENT
  Age: 49 Year
  Sex: Female
  Weight: 61 kg

DRUGS (4)
  1. RENIVACE [Suspect]
     Indication: HYPERTENSION
     Dosage: 5 MG QAM; PO
     Route: 048
     Dates: start: 20041027, end: 20041124
  2. SOLDEM [Concomitant]
  3. FESIN [Concomitant]
  4. HANP [Concomitant]

REACTIONS (4)
  - PLATELET COUNT DECREASED [None]
  - RETINAL HAEMORRHAGE [None]
  - VISUAL ACUITY REDUCED [None]
  - WHITE BLOOD CELL COUNT DECREASED [None]
